FAERS Safety Report 8873665 (Version 2)
Quarter: 2014Q1

REPORT INFORMATION
  Report Type: Spontaneous
  Country: CA (occurrence: CA)
  Receive Date: 20121030
  Receipt Date: 20140314
  Transmission Date: 20141002
  Serious: Yes (Hospitalization)
  Sender: FDA-Public Use
  Company Number: PHHY2012CA094084

PATIENT
  Age: 61 Year
  Sex: Male

DRUGS (6)
  1. HEPARIN [Suspect]
     Indication: THROMBOSIS
     Dosage: 50000 U, UNK
  2. HEPARIN [Suspect]
     Dosage: 6000 U, UNK
  3. HEPARIN [Suspect]
     Dosage: 5000 U, UNK
  4. HEPARIN [Suspect]
     Dosage: 800-1200 U/H
  5. HEPARIN [Suspect]
     Dosage: 2000 U, UNK
     Route: 040
  6. FONDAPARINUX [Concomitant]
     Dosage: 2.5 MG, QOD
     Route: 058

REACTIONS (5)
  - Respiratory failure [Recovered/Resolved]
  - Renal failure acute [Recovered/Resolved]
  - Lactic acidosis [Recovered/Resolved]
  - Heparin-induced thrombocytopenia [Recovered/Resolved]
  - Deep vein thrombosis [Recovered/Resolved]
